FAERS Safety Report 5200382-7 (Version None)
Quarter: 2006Q4

REPORT INFORMATION
  Report Type: 
  Country: None (occurrence: None)
  Receive Date: 20061016
  Receipt Date: 20060718
  Transmission Date: 20070319
  Serious: No
  Sender: FDA-Public Use
  Company Number: 2006SP002731

PATIENT
  Age: 40 Year
  Sex: Male
  Weight: 65.7716 kg

DRUGS (6)
  1. LUNESTA [Suspect]
     Indication: INSOMNIA
     Dosage: SEE IMAGE
     Route: 048
     Dates: start: 20060601, end: 20060101
  2. LUNESTA [Suspect]
     Indication: INSOMNIA
     Dosage: SEE IMAGE
     Route: 048
     Dates: start: 20060701, end: 20060711
  3. VITAMIN CAP [Concomitant]
  4. VITAMIN B COMPLEX CAP [Concomitant]
  5. AMINO ACIDS NOS [Concomitant]
  6. FISH OIL [Concomitant]

REACTIONS (4)
  - HYPERSENSITIVITY [None]
  - NASAL CONGESTION [None]
  - PYREXIA [None]
  - SINUSITIS [None]
